FAERS Safety Report 25772197 (Version 1)
Quarter: 2025Q3

REPORT INFORMATION
  Report Type: Spontaneous
  Country: US (occurrence: US)
  Receive Date: 20250908
  Receipt Date: 20250908
  Transmission Date: 20251021
  Serious: Yes (Death)
  Sender: DAIICHI
  Company Number: US-DSJP-DS-2025-163228-US

PATIENT
  Age: 70 Year
  Sex: Female

DRUGS (1)
  1. DATROWAY [Suspect]
     Active Substance: DATOPOTAMAB DERUXTECAN-DLNK
     Indication: Product used for unknown indication
     Dosage: 336.6 MG, ONCE EVERY 3 WK
     Route: 042
     Dates: start: 20250630

REACTIONS (1)
  - Death [Fatal]

NARRATIVE: CASE EVENT DATE: 20250715
